FAERS Safety Report 8544155-6 (Version None)
Quarter: 2012Q3

REPORT INFORMATION
  Report Type: 
  Country: None (occurrence: None)
  Receive Date: 20120727
  Receipt Date: 20120724
  Transmission Date: 20120928
  Serious: Yes (Death, Hospitalization)
  Sender: FDA-Public Use
  Company Number: CN-PFIZER INC-2012104427

PATIENT
  Age: 65 Year
  Sex: Male
  Weight: 81 kg

DRUGS (8)
  1. OXYCODONE [Concomitant]
     Indication: BONE PAIN
     Dosage: UNK
     Route: 048
     Dates: start: 20120217
  2. METOCLOPRAMIDE [Concomitant]
     Indication: VOMITING
  3. ONDANSETRON HYDROCHLORIDE [Concomitant]
     Indication: NAUSEA
     Dosage: 8 MG, 3X/DAY
     Route: 048
     Dates: start: 20120219
  4. ONDANSETRON HYDROCHLORIDE [Concomitant]
     Indication: VOMITING
  5. METOCLOPRAMIDE [Concomitant]
     Indication: NAUSEA
     Dosage: 10 MG, 1X/DAY
     Route: 048
     Dates: start: 20120219
  6. CRIZOTINIB [Suspect]
     Dosage: 250 MG, 2X/DAY
     Route: 048
     Dates: start: 20120329, end: 20120413
  7. ACETAMINOPHEN [Concomitant]
     Indication: BONE PAIN
     Dosage: UNK
     Route: 048
     Dates: start: 20120217
  8. CRIZOTINIB [Suspect]
     Indication: NON-SMALL CELL LUNG CANCER
     Dosage: 250 MG, 2X/DAY
     Route: 048
     Dates: start: 20111118, end: 20120323

REACTIONS (4)
  - HYPOKALAEMIA [None]
  - DEATH [None]
  - HYPOPROTEINAEMIA [None]
  - DECREASED APPETITE [None]
